FAERS Safety Report 25045034 (Version 1)
Quarter: 2025Q1

REPORT INFORMATION
  Report Type: Spontaneous
  Country: FR (occurrence: FR)
  Receive Date: 20250306
  Receipt Date: 20250306
  Transmission Date: 20250409
  Serious: Yes (Death)
  Sender: RANBAXY
  Company Number: FR-AFSSAPS-DJ2025000025

PATIENT
  Age: 67 Year
  Sex: Male

DRUGS (2)
  1. TEMOZOLOMIDE [Suspect]
     Active Substance: TEMOZOLOMIDE
     Indication: Glioblastoma
     Dosage: 240 MILLIGRAM, DAILY
     Route: 048
     Dates: start: 20241126, end: 20241130
  2. BEVACIZUMAB [Suspect]
     Active Substance: BEVACIZUMAB
     Indication: Glioblastoma
     Route: 040
     Dates: start: 20241126, end: 20241126

REACTIONS (1)
  - Intracranial tumour haemorrhage [Fatal]

NARRATIVE: CASE EVENT DATE: 20241208
